FAERS Safety Report 7889008-1 (Version None)
Quarter: 2011Q4

REPORT INFORMATION
  Report Type: 
  Country: None (occurrence: None)
  Receive Date: 20111101
  Receipt Date: 20111020
  Transmission Date: 20120403
  Serious: Yes (Other)
  Sender: FDA-Public Use
  Company Number: 2011AT000410

PATIENT
  Age: 82 Year
  Sex: Male

DRUGS (1)
  1. ALPROSTADIL [Suspect]
     Indication: PRODUCT USED FOR UNKNOWN INDICATION

REACTIONS (2)
  - PULMONARY CONGESTION [None]
  - DYSPNOEA [None]
